FAERS Safety Report 15196657 (Version 2)
Quarter: 2018Q3

REPORT INFORMATION
  Report Type: Report from Study
  Country: PT (occurrence: PT)
  Receive Date: 20180725
  Receipt Date: 20180809
  Transmission Date: 20181010
  Serious: Yes (Other)
  Sender: FDA-Public Use
  Company Number: PT-JNJFOC-20180723032

PATIENT
  Age: 44 Year
  Sex: Female

DRUGS (2)
  1. ETHINYLESTRADIOL/DROSPIRENONE [Interacting]
     Active Substance: DROSPIRENONE\ETHINYL ESTRADIOL
     Indication: PRODUCT USED FOR UNKNOWN INDICATION
     Dosage: 0.03 MG + 3MG
     Route: 065
  2. SIMPONI [Suspect]
     Active Substance: GOLIMUMAB
     Indication: RHEUMATOID ARTHRITIS
     Route: 058
     Dates: start: 20180716

REACTIONS (10)
  - Haemoglobin decreased [Unknown]
  - Haemorrhage urinary tract [Recovered/Resolved]
  - Epistaxis [Recovered/Resolved]
  - Pain [Unknown]
  - Nausea [Not Recovered/Not Resolved]
  - Headache [Not Recovered/Not Resolved]
  - Abdominal pain [Recovered/Resolved]
  - Nasal dryness [Unknown]
  - Blood urine present [Recovered/Resolved]
  - Drug interaction [Unknown]

NARRATIVE: CASE EVENT DATE: 20180717
